FAERS Safety Report 7646416-1 (Version None)
Quarter: 2011Q3

REPORT INFORMATION
  Report Type: 
  Country: None (occurrence: None)
  Receive Date: 20110801
  Receipt Date: 20110720
  Transmission Date: 20111222
  Serious: Yes (Hospitalization)
  Sender: FDA-Public Use
  Company Number: GB-JNJFOC-20090701870

PATIENT
  Sex: Male
  Weight: 99.7 kg

DRUGS (3)
  1. REMICADE [Suspect]
     Indication: CROHN'S DISEASE
     Route: 042
     Dates: start: 20090328
  2. REMICADE [Suspect]
     Route: 042
     Dates: start: 20090518
  3. REMICADE [Suspect]
     Route: 042
     Dates: start: 20090126

REACTIONS (1)
  - SUPRAVENTRICULAR TACHYCARDIA [None]
